FAERS Safety Report 5699447-5 (Version None)
Quarter: 2008Q2

REPORT INFORMATION
  Report Type: 
  Country: None (occurrence: None)
  Receive Date: 20080407
  Receipt Date: 20080407
  Transmission Date: 20081010
  Serious: No
  Sender: FDA-Public Use
  Company Number: None

PATIENT
  Age: 96 Year
  Sex: Female
  Weight: 69.8539 kg

DRUGS (1)
  1. DOXYCYCLINE 100MG CAPS (HYCLATE) [Suspect]
     Indication: STAPHYLOCOCCAL INFECTION
     Dosage: 100MG PO BID X 14 DAYS
     Route: 048
     Dates: start: 20080404

REACTIONS (3)
  - ANXIETY [None]
  - DYSPNOEA [None]
  - THROAT IRRITATION [None]
